FAERS Safety Report 24756440 (Version 1)
Quarter: 2024Q4

REPORT INFORMATION
  Report Type: Spontaneous
  Country: US (occurrence: US)
  Receive Date: 20241220
  Receipt Date: 20241220
  Transmission Date: 20250114
  Serious: No
  Sender: ELI LILLY AND COMPANY
  Company Number: US-ELI_LILLY_AND_COMPANY-US202412010548

PATIENT
  Age: 63 Year
  Sex: Female

DRUGS (4)
  1. EMGALITY [Suspect]
     Active Substance: GALCANEZUMAB-GNLM
     Indication: Cerebrovascular accident
     Dosage: 80 MG, MONTHLY (1/M)
     Route: 058
  2. EMGALITY [Suspect]
     Active Substance: GALCANEZUMAB-GNLM
     Indication: Cerebrovascular accident
     Dosage: 80 MG, MONTHLY (1/M)
     Route: 058
  3. EMGALITY [Suspect]
     Active Substance: GALCANEZUMAB-GNLM
     Indication: Migraine
     Dosage: 80 MG, MONTHLY (1/M)
     Route: 058
  4. EMGALITY [Suspect]
     Active Substance: GALCANEZUMAB-GNLM
     Indication: Migraine
     Dosage: 80 MG, MONTHLY (1/M)
     Route: 058

REACTIONS (4)
  - Visual impairment [Unknown]
  - Drug dose omission by device [Unknown]
  - Off label use [Unknown]
  - Injection site haemorrhage [Unknown]
